FAERS Safety Report 20740177 (Version 1)
Quarter: 2022Q2

REPORT INFORMATION
  Report Type: Spontaneous
  Country: US (occurrence: US)
  Receive Date: 20220422
  Receipt Date: 20220422
  Transmission Date: 20220720
  Serious: Yes (Death, Life-Threatening, Hospitalization, Other)
  Sender: FDA-Public Use
  Company Number: US-BRISTOL-MYERS SQUIBB COMPANY-2022-024441

PATIENT
  Age: 82 Year
  Sex: Male

DRUGS (1)
  1. REVLIMID [Suspect]
     Active Substance: LENALIDOMIDE
     Indication: Plasma cell myeloma
     Dosage: QDX14/21D, THERPY STOP DATE: APPROX 28 -AN-2022
     Route: 048
     Dates: start: 20210318, end: 202201

REACTIONS (4)
  - Death [Fatal]
  - Renal impairment [Unknown]
  - COVID-19 [Unknown]
  - Rectal cancer [Unknown]

NARRATIVE: CASE EVENT DATE: 20220129
